FAERS Safety Report 19194442 (Version 1)
Quarter: 2021Q2

REPORT INFORMATION
  Report Type: Spontaneous
  Country: JP (occurrence: JP)
  Receive Date: 20210429
  Receipt Date: 20210429
  Transmission Date: 20210717
  Serious: Yes (Other)
  Sender: FDA-Public Use
  Company Number: JP-PFIZER INC-2021458874

PATIENT
  Age: 73 Year
  Sex: Male

DRUGS (1)
  1. BRAFTOVI [Suspect]
     Active Substance: ENCORAFENIB
     Indication: COLON CANCER
     Dosage: 300 MG, EVERYDAY
     Route: 048
     Dates: start: 20210416

REACTIONS (3)
  - Depressed level of consciousness [Recovering/Resolving]
  - Vomiting [Unknown]
  - Ammonia increased [Unknown]

NARRATIVE: CASE EVENT DATE: 20210418
